FAERS Safety Report 4302783-8 (Version None)
Quarter: 2004Q1

REPORT INFORMATION
  Report Type: 
  Country: None (occurrence: None)
  Receive Date: 20040126
  Receipt Date: 20031015
  Transmission Date: 20041129
  Serious: No
  Sender: FDA-Public Use
  Company Number: USA031049926

PATIENT
  Sex: Male

DRUGS (1)
  1. STRATTERA [Suspect]
     Indication: ATTENTION DEFICIT/HYPERACTIVITY DISORDER
     Dosage: 18 MG/IN THE EVENING
     Dates: start: 20030901

REACTIONS (4)
  - CRYING [None]
  - EMOTIONAL DISTRESS [None]
  - FATIGUE [None]
  - MIDDLE INSOMNIA [None]
